FAERS Safety Report 6867499-2 (Version None)
Quarter: 2010Q3

REPORT INFORMATION
  Report Type: 
  Country: None (occurrence: None)
  Receive Date: 20100722
  Receipt Date: 20100719
  Transmission Date: 20110219
  Serious: Yes (Other)
  Sender: FDA-Public Use
  Company Number: US-JNJFOC-20100506937

PATIENT
  Age: 6 Year
  Sex: Female
  Weight: 19.05 kg

DRUGS (2)
  1. CHILDREN'S MOTRIN [Suspect]
     Route: 048
  2. CHILDREN'S MOTRIN [Suspect]
     Indication: PYREXIA
     Route: 048

REACTIONS (3)
  - PRODUCT QUALITY ISSUE [None]
  - PYREXIA [None]
  - VOMITING [None]
